FAERS Safety Report 24209416 (Version 1)
Quarter: 2024Q3

REPORT INFORMATION
  Report Type: Spontaneous
  Country: CN (occurrence: CN)
  Receive Date: 20240814
  Receipt Date: 20240814
  Transmission Date: 20241016
  Serious: Yes (Other)
  Sender: RANBAXY
  Company Number: CN-SUN PHARMACEUTICAL INDUSTRIES LTD-2024R1-462467

PATIENT
  Age: 60 Year
  Sex: Female

DRUGS (6)
  1. PREDNISONE [Suspect]
     Active Substance: PREDNISONE
     Indication: Acute lymphocytic leukaemia recurrent
     Dosage: 60 MILLIGRAM(D1-D7)
     Route: 065
  2. VINCRISTINE [Suspect]
     Active Substance: VINCRISTINE
     Indication: Acute lymphocytic leukaemia recurrent
     Dosage: 4 MILLIGRAM(QW)
     Route: 065
  3. VINCRISTINE [Suspect]
     Active Substance: VINCRISTINE
     Dosage: 4 MILLIGRAM(D1, D8, D15, D22)
     Route: 065
  4. CYCLOPHOSPHAMIDE [Suspect]
     Active Substance: CYCLOPHOSPHAMIDE
     Indication: Acute lymphocytic leukaemia recurrent
     Dosage: 1 GRAM(D1)
     Route: 065
  5. IDARUBICIN [Suspect]
     Active Substance: IDARUBICIN
     Indication: Acute lymphocytic leukaemia
     Dosage: 10 MILLIGRAM
     Route: 065
  6. liposomal mitoxantrone [Concomitant]
     Indication: Acute lymphocytic leukaemia
     Dosage: 10 MILLIGRAM(D1-D3, D15-D17
     Route: 065

REACTIONS (2)
  - Myelosuppression [Unknown]
  - Pneumonia [Unknown]
